FAERS Safety Report 7135490-7 (Version None)
Quarter: 2010Q4

REPORT INFORMATION
  Report Type: 
  Country: None (occurrence: None)
  Receive Date: 20101119
  Receipt Date: 20101105
  Transmission Date: 20110411
  Serious: Yes (Hospitalization)
  Sender: FDA-Public Use
  Company Number: IDA-00453

PATIENT
  Age: 75 Year
  Sex: Male

DRUGS (2)
  1. INDERAL [Suspect]
     Indication: TACHYARRHYTHMIA
     Dosage: 20 MG PRN ORAL FORMULATION: TABLET
     Route: 048
     Dates: start: 20080101, end: 20100616
  2. VENTOLIN [Concomitant]

REACTIONS (4)
  - ARRHYTHMIA [None]
  - ASTHENIA [None]
  - CHEST PAIN [None]
  - VERTIGO [None]
